FAERS Safety Report 10071885 (Version 1)
Quarter: 2014Q2

REPORT INFORMATION
  Report Type: Spontaneous
  Country: US (occurrence: US)
  Receive Date: 20140411
  Receipt Date: 20140411
  Transmission Date: 20141212
  Serious: No
  Sender: FDA-Public Use
  Company Number: US-009507513-1403USA013849

PATIENT
  Age: 61 Year
  Sex: Male
  Weight: 99.77 kg

DRUGS (7)
  1. PEGINTRON [Suspect]
     Dosage: 150 MICROGRAM/0.5 ML, QW
     Route: 058
  2. RIBAPAK [Suspect]
     Dosage: 1200 MG/DAY
     Route: 048
  3. COLCRYS [Concomitant]
     Dosage: 0.6 MG
     Route: 048
  4. SYNTHROID [Concomitant]
     Dosage: 100 MICROGRAM
     Route: 048
  5. SOVALDI [Concomitant]
     Dosage: 400 MG
     Route: 048
  6. ESCITALOPRAM [Concomitant]
     Dosage: 10 MG
     Route: 048
  7. ASPIRIN [Concomitant]
     Dosage: 325 MG
     Route: 048

REACTIONS (4)
  - Platelet count decreased [Unknown]
  - Influenza like illness [Unknown]
  - Fatigue [Unknown]
  - Injection site reaction [Unknown]
